FAERS Safety Report 8896121 (Version 1)
Quarter: 2012Q4

REPORT INFORMATION
  Report Type: 
  Country: US (occurrence: US)
  Receive Date: 20121108
  Receipt Date: 20121108
  Transmission Date: 20130627
  Serious: Yes (Other)
  Sender: FDA-Public Use
  Company Number: US-ROCHE-784989

PATIENT
  Age: 16 Year
  Sex: Female
  Weight: 61.29 kg

DRUGS (5)
  1. ACCUTANE [Suspect]
     Indication: ACNE
     Route: 048
     Dates: start: 199712, end: 1998
  2. ACCUTANE [Suspect]
     Route: 048
     Dates: start: 199801, end: 199806
  3. ACCUTANE [Suspect]
     Route: 048
     Dates: start: 199811, end: 199905
  4. ACCUTANE [Suspect]
     Route: 048
     Dates: start: 199902, end: 199911
  5. ZYRTEC [Concomitant]

REACTIONS (9)
  - Colitis ulcerative [Unknown]
  - Inflammatory bowel disease [Unknown]
  - Irritable bowel syndrome [Unknown]
  - Emotional distress [Unknown]
  - Xerosis [Unknown]
  - Chapped lips [Unknown]
  - Cheilitis [Unknown]
  - Acne [Unknown]
  - Eczema asteatotic [Unknown]
